FAERS Safety Report 5101606-7 (Version None)
Quarter: 2006Q3

REPORT INFORMATION
  Report Type: 
  Country: None (occurrence: None)
  Receive Date: 20060731
  Receipt Date: 20060622
  Transmission Date: 20061208
  Serious: No
  Sender: FDA-Public Use
  Company Number: 2006PV016232

PATIENT
  Age: 66 Year
  Sex: Female
  Weight: 67.586 kg

DRUGS (2)
  1. BYETTA [Suspect]
     Dosage: 10 MCG : 5MCG ; BID; SC
     Route: 058
     Dates: start: 20060301, end: 20060401
  2. BYETTA [Suspect]
     Dosage: 10 MCG : 5MCG ; BID; SC
     Route: 058
     Dates: start: 20060401

REACTIONS (3)
  - DIZZINESS [None]
  - THERAPEUTIC RESPONSE UNEXPECTED [None]
  - WEIGHT DECREASED [None]
